FAERS Safety Report 7896542-7 (Version None)
Quarter: 2011Q4

REPORT INFORMATION
  Report Type: 
  Country: None (occurrence: None)
  Receive Date: 20111106
  Receipt Date: 20111028
  Transmission Date: 20120403
  Serious: No
  Sender: FDA-Public Use
  Company Number: US-AMGEN-USASP2011039372

PATIENT
  Age: 38 Year
  Sex: Male
  Weight: 98.866 kg

DRUGS (1)
  1. ENBREL [Suspect]
     Indication: PSORIASIS
     Dosage: 50 MG, 2 TIMES/WK
     Dates: start: 20110723

REACTIONS (3)
  - PARAESTHESIA OF GENITAL MALE [None]
  - MICTURITION URGENCY [None]
  - PSORIASIS [None]
